FAERS Safety Report 22625316 (Version 2)
Quarter: 2024Q1

REPORT INFORMATION
  Report Type: Spontaneous
  Country: IT (occurrence: IT)
  Receive Date: 20230621
  Receipt Date: 20240227
  Transmission Date: 20240410
  Serious: Yes (Other)
  Sender: FDA-Public Use
  Company Number: IT-SUN PHARMACEUTICAL INDUSTRIES LTD-2023RR-394413

PATIENT
  Age: 21 Year
  Sex: Female

DRUGS (6)
  1. CETIRIZINE [Suspect]
     Active Substance: CETIRIZINE HYDROCHLORIDE
     Indication: Solar urticaria
     Dosage: 10 MILLIGRAM, DAILY
     Route: 065
  2. RANITIDINE [Suspect]
     Active Substance: RANITIDINE
     Indication: Solar urticaria
     Dosage: 150 MILLIGRAM, DAILY
     Route: 065
  3. MONTELUKAST [Suspect]
     Active Substance: MONTELUKAST SODIUM
     Indication: Solar urticaria
     Dosage: 10 MILLIGRAM, DAILY
     Route: 065
  4. DESLORATADINE [Suspect]
     Active Substance: DESLORATADINE
     Indication: Solar urticaria
     Dosage: 5 MILLIGRAM, DAILY
     Route: 065
  5. PREDNISONE [Suspect]
     Active Substance: PREDNISONE
     Indication: Solar urticaria
     Dosage: 25 MILLIGRAM, DAILY
     Route: 048
  6. HYDROXYZINE [Suspect]
     Active Substance: HYDROXYZINE HYDROCHLORIDE
     Indication: Solar urticaria
     Dosage: 25 MILLIGRAM, DAILY
     Route: 065

REACTIONS (1)
  - Drug ineffective [Unknown]
